FAERS Safety Report 14534472 (Version 1)
Quarter: 2018Q1

REPORT INFORMATION
  Report Type: Spontaneous
  Country: US (occurrence: US)
  Receive Date: 20180214
  Receipt Date: 20180214
  Transmission Date: 20180509
  Serious: Yes (Disabling)
  Sender: FDA-Public Use
  Company Number: None

PATIENT
  Age: 31 Year
  Sex: Female
  Weight: 92.08 kg

DRUGS (6)
  1. FISH OIL [Concomitant]
     Active Substance: FISH OIL
  2. PRENA-1 PEARL VITAMIN [Concomitant]
  3. XIIDRA [Concomitant]
     Active Substance: LIFITEGRAST
  4. SYSTANE GEL [Concomitant]
  5. PRESERVATIVE-FREE TEARS [Concomitant]
  6. MIRENA [Suspect]
     Active Substance: LEVONORGESTREL

REACTIONS (2)
  - Dry eye [None]
  - Therapeutic response unexpected [None]

NARRATIVE: CASE EVENT DATE: 20170407
